APPROVED DRUG PRODUCT: HEPARIN SODIUM
Active Ingredient: HEPARIN SODIUM
Strength: 1,000 UNITS/ML
Dosage Form/Route: INJECTABLE;INJECTION
Application: N201370 | Product #001
Applicant: PFIZER INC
Approved: Jul 21, 2011 | RLD: Yes | RS: No | Type: DISCN